FAERS Safety Report 18954614 (Version 3)
Quarter: 2021Q2

REPORT INFORMATION
  Report Type: Spontaneous
  Country: US (occurrence: US)
  Receive Date: 20210301
  Receipt Date: 20210401
  Transmission Date: 20210717
  Serious: No
  Sender: FDA-Public Use
  Company Number: US-SA-2021SA059111

PATIENT
  Age: 72 Year
  Sex: Male

DRUGS (1)
  1. LANTUS [Suspect]
     Active Substance: INSULIN GLARGINE
     Indication: TYPE 2 DIABETES MELLITUS
     Dosage: 26 IU, QD
     Route: 065
     Dates: start: 2004

REACTIONS (4)
  - Product storage error [Unknown]
  - Device delivery system issue [Unknown]
  - Feeling abnormal [Unknown]
  - Device leakage [Unknown]

NARRATIVE: CASE EVENT DATE: 202102
